FAERS Safety Report 9286726 (Version 1)
Quarter: 2012Q4

REPORT INFORMATION
  Report Type: Spontaneous
  Country: US (occurrence: None)
  Receive Date: 20120928
  Receipt Date: 20120928
  Transmission Date: 20130627
  Serious: Yes (Other)
  Sender: FDA-Public Use
  Company Number: 2012MA011824

PATIENT
  Age: 51 Year
  Sex: Female

DRUGS (1)
  1. PACLITAXEL [Suspect]
     Indication: BREAST ADENOCARCINOMA
     Route: 042
     Dates: start: 20120817, end: 20120817

REACTIONS (4)
  - Chest discomfort [None]
  - Erythema [None]
  - Hyperhidrosis [None]
  - Retching [None]
